FAERS Safety Report 14617259 (Version 1)
Quarter: 2018Q1

REPORT INFORMATION
  Report Type: Spontaneous
  Country: US (occurrence: US)
  Receive Date: 20180309
  Receipt Date: 20180309
  Transmission Date: 20180509
  Serious: Yes (Other)
  Sender: FDA-Public Use
  Company Number: US-ASTRAZENECA-2018SE28701

PATIENT
  Age: 22698 Day
  Sex: Female
  Weight: 72.6 kg

DRUGS (6)
  1. ATACAND [Suspect]
     Active Substance: CANDESARTAN CILEXETIL
     Indication: HYPERTENSION
     Route: 048
     Dates: start: 1998
  2. PALBOCICLIB [Suspect]
     Active Substance: PALBOCICLIB
     Dosage: COMBINATION THERAPY WITH LETROZOLE
     Route: 048
     Dates: start: 2015, end: 201704
  3. PALBOCICLIB [Suspect]
     Active Substance: PALBOCICLIB
     Dosage: COMBINATION THERAPY WITH FASLODEX, 125 MILLIGRAMS ONCE DAILY, FOR 21 DAYS OFF FOR 7 DAYS
     Route: 048
     Dates: start: 201704
  4. FASLODEX [Suspect]
     Active Substance: FULVESTRANT
     Indication: OESTROGEN RECEPTOR POSITIVE BREAST CANCER
     Dosage: 500 MG FOR TAKING THE MEDICATION EVERY 28 DAYS
     Route: 030
     Dates: start: 201704
  5. LETROZOLE. [Concomitant]
     Active Substance: LETROZOLE
     Dates: start: 201411, end: 201704
  6. ATACAND [Suspect]
     Active Substance: CANDESARTAN CILEXETIL
     Indication: HYPERTENSION
     Dosage: CAN DESARTAN CILEXETIL 32 MG DAILY.
     Route: 048

REACTIONS (5)
  - Injection site nodule [Not Recovered/Not Resolved]
  - Fatigue [Not Recovered/Not Resolved]
  - Neuropathy peripheral [Not Recovered/Not Resolved]
  - Breast cancer metastatic [Unknown]
  - Phantom pain [Not Recovered/Not Resolved]

NARRATIVE: CASE EVENT DATE: 201411
